FAERS Safety Report 24717805 (Version 1)
Quarter: 2024Q4

REPORT INFORMATION
  Report Type: Spontaneous
  Country: CN (occurrence: CN)
  Receive Date: 20241210
  Receipt Date: 20241210
  Transmission Date: 20250115
  Serious: Yes (Other)
  Sender: MERCK
  Company Number: CN-009507513-2412CHN001566

PATIENT
  Age: 78 Year
  Sex: Male
  Weight: 50 kg

DRUGS (2)
  1. CILASTATIN SODIUM\IMIPENEM [Suspect]
     Active Substance: CILASTATIN SODIUM\IMIPENEM
     Indication: Anti-infective therapy
     Dosage: 0.5 G, Q6H
     Route: 041
     Dates: start: 20241112, end: 20241116
  2. SODIUM CHLORIDE [Concomitant]
     Active Substance: SODIUM CHLORIDE
     Indication: Medication dilution
     Dosage: 100 ML, Q6H
     Route: 041
     Dates: start: 20241112, end: 20241116

REACTIONS (4)
  - Seizure [Recovering/Resolving]
  - C-reactive protein increased [Unknown]
  - Interleukin level increased [Unknown]
  - Procalcitonin increased [Unknown]

NARRATIVE: CASE EVENT DATE: 20241116
